FAERS Safety Report 24638474 (Version 1)
Quarter: 2024Q4

REPORT INFORMATION
  Report Type: Spontaneous
  Country: US (occurrence: None)
  Receive Date: 20241119
  Receipt Date: 20241119
  Transmission Date: 20250115
  Serious: Yes (Hospitalization)
  Sender: Public
  Company Number: None

PATIENT
  Age: 56 Year
  Sex: Male

DRUGS (2)
  1. EMPAGLIFLOZIN [Suspect]
     Active Substance: EMPAGLIFLOZIN
     Indication: Diabetes mellitus
     Dosage: FREQUENCY : DAILY;?
     Route: 048
     Dates: start: 20240618, end: 20240823
  2. INSULIN GLARGINE [Suspect]
     Active Substance: INSULIN GLARGINE

REACTIONS (7)
  - Chest pain [None]
  - Diabetic ketoacidosis [None]
  - Abdominal discomfort [None]
  - Nausea [None]
  - Vomiting [None]
  - Urinary retention [None]
  - Drug ineffective [None]

NARRATIVE: CASE EVENT DATE: 20240828
